FAERS Safety Report 15539190 (Version 3)
Quarter: 2018Q4

REPORT INFORMATION
  Report Type: Spontaneous
  Country: PT (occurrence: PT)
  Receive Date: 20181022
  Receipt Date: 20181221
  Transmission Date: 20190205
  Serious: Yes (Other)
  Sender: FDA-Public Use
  Company Number: PHHY2018PT128310

PATIENT
  Age: 27 Year
  Sex: Male

DRUGS (9)
  1. LEVOMEPROMAZINE [Suspect]
     Active Substance: LEVOMEPROMAZINE
     Dosage: 25 MG, TID
     Route: 065
  2. LORAZEPAM. [Suspect]
     Active Substance: LORAZEPAM
     Indication: ABNORMAL BEHAVIOUR
     Dosage: 10 MG, QD
     Route: 048
  3. DIAZEPAM. [Suspect]
     Active Substance: DIAZEPAM
     Indication: ABNORMAL BEHAVIOUR
     Dosage: 10 MG, UNK
     Route: 065
  4. HALOPERIDOL. [Suspect]
     Active Substance: HALOPERIDOL
     Indication: ABNORMAL BEHAVIOUR
     Dosage: 10 MG, UNK
     Route: 030
  5. LEVOMEPROMAZINE [Suspect]
     Active Substance: LEVOMEPROMAZINE
     Dosage: 300 MG, QD
     Route: 065
  6. CHLORPROMAZINE HYDROCHLORIDE. [Suspect]
     Active Substance: CHLORPROMAZINE HYDROCHLORIDE
     Indication: ABNORMAL BEHAVIOUR
     Dosage: 50 MG, UNK
     Route: 065
  7. LEVOMEPROMAZINE [Suspect]
     Active Substance: LEVOMEPROMAZINE
     Indication: ABNORMAL BEHAVIOUR
     Dosage: 75 MG, QD
     Route: 048
  8. RISPERIDONE. [Suspect]
     Active Substance: RISPERIDONE
     Indication: ABNORMAL BEHAVIOUR
     Dosage: 4 MG, QD
     Route: 048
  9. BIPERIDEN [Suspect]
     Active Substance: BIPERIDEN
     Indication: ABNORMAL BEHAVIOUR
     Dosage: 4 MG, QD
     Route: 048

REACTIONS (4)
  - Drug abuse [Unknown]
  - Drug screen false positive [Recovered/Resolved]
  - Drug ineffective [Unknown]
  - Therapeutic product cross-reactivity [Unknown]
